FAERS Safety Report 15448771 (Version 2)
Quarter: 2019Q3

REPORT INFORMATION
  Report Type: Spontaneous
  Country: US (occurrence: US)
  Receive Date: 20180929
  Receipt Date: 20190717
  Transmission Date: 20191004
  Serious: No
  Sender: FDA-Public Use
  Company Number: US-JNJFOC-20180914286

PATIENT
  Sex: Female
  Weight: 59.02 kg

DRUGS (1)
  1. TREMFYA [Suspect]
     Active Substance: GUSELKUMAB
     Indication: PSORIASIS
     Dosage: 100 MG/ML
     Route: 058
     Dates: start: 201803

REACTIONS (3)
  - Muscle spasms [Recovered/Resolved with Sequelae]
  - Alcohol intolerance [Recovered/Resolved]
  - Pain in extremity [Recovered/Resolved with Sequelae]
